FAERS Safety Report 21205591 (Version 2)
Quarter: 2022Q4

REPORT INFORMATION
  Report Type: Report from Study
  Country: CA (occurrence: None)
  Receive Date: 20220812
  Receipt Date: 20221026
  Transmission Date: 20230113
  Serious: Yes (Death)
  Sender: FDA-Public Use
  Company Number: CA-ADIENNEP-2022AD000633

PATIENT

DRUGS (4)
  1. THIOTEPA [Suspect]
     Active Substance: THIOTEPA
     Indication: Central nervous system lymphoma
     Dosage: ON DAYS -6 AND -5
     Route: 042
  2. BUSULFAN [Suspect]
     Active Substance: BUSULFAN
     Indication: Central nervous system lymphoma
     Dosage: ON DAYS -4 TO -2
     Route: 042
  3. RITUXIMAB [Suspect]
     Active Substance: RITUXIMAB
     Indication: Central nervous system lymphoma
     Dosage: ON DAY 7
     Route: 041
  4. MELPHALAN [Suspect]
     Active Substance: MELPHALAN
     Indication: Central nervous system lymphoma
     Dosage: ON DAY -1
     Route: 042

REACTIONS (1)
  - Graft infection [Fatal]
